FAERS Safety Report 25673911 (Version 1)
Quarter: 2025Q3

REPORT INFORMATION
  Report Type: Spontaneous
  Country: CN (occurrence: CN)
  Receive Date: 20250813
  Receipt Date: 20250813
  Transmission Date: 20251021
  Serious: Yes (Other)
  Sender: ACCORD
  Company Number: None

PATIENT
  Age: 54 Year
  Sex: Female
  Weight: 50.6 kg

DRUGS (5)
  1. TRASTUZUMAB [Suspect]
     Active Substance: TRASTUZUMAB
     Indication: Invasive ductal breast carcinoma
     Dosage: STRENGTH: 150 MILLIGRAM?300 MILLIGRAM, QD
     Route: 042
     Dates: start: 20250712, end: 20250712
  2. CARBOPLATIN [Suspect]
     Active Substance: CARBOPLATIN
     Indication: Invasive ductal breast carcinoma
     Dosage: 400 MILLIGRAM, QD
     Route: 042
     Dates: start: 20250712, end: 20250712
  3. DOCETAXEL [Suspect]
     Active Substance: DOCETAXEL
     Indication: Invasive ductal breast carcinoma
     Dosage: 100 MILLIGRAM, QD
     Route: 042
     Dates: start: 20250712, end: 20250712
  4. PERTUZUMAB [Suspect]
     Active Substance: PERTUZUMAB
     Indication: Invasive ductal breast carcinoma
     Dosage: 14 MILLILITER, QD
     Route: 042
     Dates: start: 20250712, end: 20250712
  5. AMIFOSTINE [Concomitant]
     Active Substance: AMIFOSTINE
     Indication: Chemotherapy side effect prophylaxis
     Dosage: 800 MILLIGRAM, QD
     Route: 042
     Dates: start: 20250712, end: 20250712

REACTIONS (1)
  - Myelosuppression [Unknown]

NARRATIVE: CASE EVENT DATE: 20250713
